FAERS Safety Report 21581605 (Version 2)
Quarter: 2022Q4

REPORT INFORMATION
  Report Type: Report from Study
  Country: BR (occurrence: BR)
  Receive Date: 20221111
  Receipt Date: 20221215
  Transmission Date: 20230113
  Serious: Yes (Other)
  Sender: FDA-Public Use
  Company Number: BR-ABBVIE-4169456

PATIENT
  Sex: Female
  Weight: 63 kg

DRUGS (2)
  1. HUMIRA [Suspect]
     Active Substance: ADALIMUMAB
     Indication: Crohn^s disease
     Route: 058
     Dates: start: 20200904, end: 20221013
  2. LOSARTAN POTASSICO [Concomitant]
     Indication: Hypertension

REACTIONS (2)
  - Fistula [Unknown]
  - Intestinal fistula [Unknown]

NARRATIVE: CASE EVENT DATE: 20210101
